FAERS Safety Report 9455365 (Version 1)
Quarter: 2013Q3

REPORT INFORMATION
  Report Type: Report from Study
  Country: CA (occurrence: CA)
  Receive Date: 20130813
  Receipt Date: 20130813
  Transmission Date: 20140515
  Serious: Yes (Other)
  Sender: FDA-Public Use
  Company Number: PHHY2013CA083472

PATIENT
  Sex: Female

DRUGS (1)
  1. GILENYA [Suspect]
     Indication: RELAPSING-REMITTING MULTIPLE SCLEROSIS
     Dosage: 0.5 MG, DAILY
     Route: 048
     Dates: start: 20111108

REACTIONS (9)
  - Burnout syndrome [Unknown]
  - Fatigue [Recovering/Resolving]
  - Stress [Unknown]
  - Dysarthria [Recovered/Resolved]
  - Balance disorder [Unknown]
  - Somnolence [Recovering/Resolving]
  - Migraine [Unknown]
  - Weight decreased [Unknown]
  - Gastroenteritis viral [Recovering/Resolving]
